FAERS Safety Report 10442251 (Version 1)
Quarter: 2014Q2

REPORT INFORMATION
  Report Type: Spontaneous
  Country: US (occurrence: None)
  Receive Date: 20140616
  Receipt Date: 20140616
  Transmission Date: 20141212
  Serious: Yes (Hospitalization, Other)
  Sender: FDA-Public Use
  Company Number: 2012-001686

PATIENT
  Age: 82 Year
  Sex: Female

DRUGS (21)
  1. ACTONEL (RISEDRONATE SODIUM) TABLET, 35MG [Suspect]
     Route: 048
     Dates: start: 20030117, end: 200604
  2. DIDRONEL [Suspect]
     Dates: start: 19980325, end: 200301
  3. BONIVA (IBANDRONATE SODIUM) [Suspect]
     Route: 048
     Dates: start: 20060426, end: 200705
  4. CORTEF (HYDROCORTISONE) [Concomitant]
  5. METHYLPREDNISOLONE (METHYLPREDNISOLONE) [Concomitant]
  6. FLUDROCORTISONE ACETATE (FLUDROCORTISONE ACETATE) [Concomitant]
  7. NORVASC (AMLODIPINE BESILATE) [Concomitant]
  8. TOPROL (METOPROLOL SUCCINATE) [Concomitant]
  9. FUROSEMIDE (FUROSEMIDE) [Concomitant]
  10. SYNTHROID (LEVOTHYROXINE SODIUM) [Concomitant]
  11. LIPITOR (ATORVASTATIN CALCIUM) [Concomitant]
  12. CHLORDIAZEPDXIDE W/CLIDINIUM (CHLORDIAZEPDXIDE, CLIDINIUM) )) [Concomitant]
  13. MECLIZINE/ (MECLOZINE) [Concomitant]
  14. PAXIL (PAROXETINE HYDROCHLORIDE) [Concomitant]
  15. LEXAPRO (ESCITALOPRAM OXALATE) [Concomitant]
  16. ZOLOFT (SERTRALINE HYDROCHLORIDE) [Concomitant]
  17. WELLBUTRIN (BUPROPION HYDROCHLORIDE) [Concomitant]
  18. RISPERDAL (RISPERIDONE) [Concomitant]
  19. AMBIEN (ZOLPIDEM TARTRATE) [Concomitant]
  20. ALPRAZOLAM (ALPRAZOLAM) [Concomitant]
  21. PROVIGIL (MODAFINIL) [Concomitant]

REACTIONS (2)
  - Femur fracture [None]
  - Fracture displacement [None]
